FAERS Safety Report 25431593 (Version 1)
Quarter: 2025Q2

REPORT INFORMATION
  Report Type: Spontaneous
  Country: US (occurrence: US)
  Receive Date: 20250613
  Receipt Date: 20250613
  Transmission Date: 20250717
  Serious: No
  Sender: ITALFARMACO SPA
  Company Number: US-ITALFARMACO SPA-2178481

PATIENT
  Age: 12 Year
  Sex: Male
  Weight: 44.05 kg

DRUGS (10)
  1. DUVYZAT [Suspect]
     Active Substance: GIVINOSTAT
     Indication: Duchenne muscular dystrophy
     Dates: start: 20250321
  2. AGAMREE [Concomitant]
     Active Substance: VAMOROLONE
  3. VILTEPSO [Concomitant]
     Active Substance: VILTOLARSEN
  4. MINERALS\VITAMINS [Concomitant]
     Active Substance: MINERALS\VITAMINS
  5. HYDROCORTISONE ACETATE [Concomitant]
     Active Substance: HYDROCORTISONE ACETATE
  6. FLUOXETINE [Concomitant]
     Active Substance: FLUOXETINE HYDROCHLORIDE
  7. FAMOTIDINE [Concomitant]
     Active Substance: FAMOTIDINE
  8. EPLERENONE [Concomitant]
     Active Substance: EPLERENONE
  9. CALCIUM\VITAMIN D [Concomitant]
     Active Substance: CALCIUM\VITAMIN D
  10. BUSPIRONE [Concomitant]
     Active Substance: BUSPIRONE HYDROCHLORIDE

REACTIONS (2)
  - Irritability [Not Recovered/Not Resolved]
  - Behaviour disorder [Not Recovered/Not Resolved]
